FAERS Safety Report 11701434 (Version 1)
Quarter: 2015Q4

REPORT INFORMATION
  Report Type: Spontaneous
  Country: US (occurrence: US)
  Receive Date: 20151105
  Receipt Date: 20151105
  Transmission Date: 20160304
  Serious: Yes (Other)
  Sender: FDA-Public Use
  Company Number: US-CELGENE-USA-2015107615

PATIENT
  Age: 79 Year
  Sex: Female

DRUGS (2)
  1. POMALYST [Suspect]
     Active Substance: POMALIDOMIDE
     Indication: PLASMA CELL MYELOMA
     Route: 048
     Dates: start: 201510
  2. POMALYST [Suspect]
     Active Substance: POMALIDOMIDE
     Route: 048
     Dates: start: 201510

REACTIONS (5)
  - Throat tightness [Unknown]
  - Dyspnoea [Unknown]
  - Activities of daily living impaired [Unknown]
  - Paraesthesia [Unknown]
  - Chest pain [Unknown]

NARRATIVE: CASE EVENT DATE: 201510
